FAERS Safety Report 12889270 (Version 2)
Quarter: 2016Q4

REPORT INFORMATION
  Report Type: Report from Study
  Country: None (occurrence: US)
  Receive Date: 20161027
  Receipt Date: 20161216
  Transmission Date: 20170207
  Serious: Yes (Other)
  Sender: FDA-Public Use
  Company Number: US-ABBVIE-16K-163-1760300-00

PATIENT
  Age: 61 Year
  Sex: Female
  Weight: 115.77 kg

DRUGS (3)
  1. HUMIRA [Suspect]
     Active Substance: ADALIMUMAB
     Indication: RHEUMATOID ARTHRITIS
     Route: 058
     Dates: start: 2014, end: 201606
  2. HUMIRA [Suspect]
     Active Substance: ADALIMUMAB
     Route: 058
     Dates: start: 201609, end: 20161122
  3. NEXIUM [Concomitant]
     Active Substance: ESOMEPRAZOLE MAGNESIUM
     Indication: DYSPEPSIA

REACTIONS (10)
  - Pain [Recovering/Resolving]
  - Limb injury [Unknown]
  - Lumbar vertebral fracture [Recovering/Resolving]
  - Gait disturbance [Recovered/Resolved]
  - Synovial cyst [Recovered/Resolved]
  - Spinal column stenosis [Recovered/Resolved]
  - Fall [Recovering/Resolving]
  - Postoperative fever [Recovered/Resolved]
  - Pain [Recovered/Resolved]
  - Discomfort [Recovered/Resolved]

NARRATIVE: CASE EVENT DATE: 2014
